FAERS Safety Report 4781626-2 (Version None)
Quarter: 2005Q3

REPORT INFORMATION
  Report Type: 
  Country: None (occurrence: None)
  Receive Date: 20050927
  Receipt Date: 20050914
  Transmission Date: 20060218
  Serious: Yes (Other)
  Sender: FDA-Public Use
  Company Number: 2005129705

PATIENT
  Age: 29 Year
  Sex: Male
  Weight: 80 kg

DRUGS (1)
  1. VORICONAZOLE (VORICONAZOLE) [Suspect]
     Indication: ASPERGILLOSIS
     Dosage: 400 MG (2 IN 1 D), ORAL
     Route: 048
     Dates: start: 20021222

REACTIONS (13)
  - ASPERGILLOSIS [None]
  - CEREBROVASCULAR DISORDER [None]
  - ESCHERICHIA SEPSIS [None]
  - FUNGUS SPUTUM TEST POSITIVE [None]
  - GRAFT VERSUS HOST DISEASE [None]
  - HAEMOPTYSIS [None]
  - LUNG INFILTRATION [None]
  - MONOPLEGIA [None]
  - NERVOUS SYSTEM DISORDER [None]
  - SCAR [None]
  - SKIN NECROSIS [None]
  - STEM CELL TRANSPLANT [None]
  - ZYGOMYCOSIS [None]
